FAERS Safety Report 24307415 (Version 2)
Quarter: 2024Q3

REPORT INFORMATION
  Report Type: Spontaneous
  Country: US (occurrence: US)
  Receive Date: 20240911
  Receipt Date: 20240916
  Transmission Date: 20241017
  Serious: Yes (Other)
  Sender: SANOFI AVENTIS
  Company Number: US-SANOFI-02201411

PATIENT
  Age: 72 Year
  Sex: Female

DRUGS (2)
  1. SOLIQUA 100/33 [Suspect]
     Active Substance: INSULIN GLARGINE\LIXISENATIDE
     Indication: Type 2 diabetes mellitus
     Dosage: 30 IU, QD
  2. METFORMIN [Suspect]
     Active Substance: METFORMIN HYDROCHLORIDE
     Dosage: 1000 MG, QD

REACTIONS (11)
  - Hip arthroplasty [Unknown]
  - Pain [Unknown]
  - Fibromyalgia [Not Recovered/Not Resolved]
  - Arthritis [Unknown]
  - Periarthritis [Unknown]
  - Tendonitis [Unknown]
  - Arthropathy [Unknown]
  - Intervertebral disc protrusion [Unknown]
  - Limb injury [Unknown]
  - Abdominal injury [Unknown]
  - Injury associated with device [Unknown]
